FAERS Safety Report 6274231-2 (Version None)
Quarter: 2009Q3

REPORT INFORMATION
  Report Type: 
  Country: None (occurrence: None)
  Receive Date: 20090720
  Receipt Date: 20090708
  Transmission Date: 20100115
  Serious: Yes (Disabling, Other)
  Sender: FDA-Public Use
  Company Number: AU-PFIZER INC-2009224918

PATIENT
  Age: 85 Year

DRUGS (14)
  1. LYRICA [Suspect]
     Indication: NEUROPATHY PERIPHERAL
     Dosage: 75 MG, 2X/DAY
     Route: 048
     Dates: start: 20090410, end: 20090417
  2. LIPITOR [Concomitant]
     Dosage: 40 MG IN THE EVENING
     Route: 048
  3. MINAX [Concomitant]
     Dosage: ONE AND A HALF 50MG TWICE DAILY
     Route: 048
  4. TEVETEN HCT [Concomitant]
     Dosage: 600MG/12.5MG IN THE MORNING
     Route: 048
  5. ZANIDIP [Concomitant]
     Dosage: HALF A 10MG IN THE MORNING BEFORE MEALS
     Route: 048
  6. CARTIA XT [Concomitant]
     Dosage: 100 MG DAILY AFTER MEALS
     Route: 048
  7. LASIX [Concomitant]
     Dosage: 40 MG IN THE MORNING
     Route: 048
  8. CALTRATE [Concomitant]
     Dosage: 1500 MG (600MG CA) IN THE EVENING
     Route: 048
  9. GLUCOSAMINE HYDROCHLORIDE [Concomitant]
     Dosage: TWO 750MG TWICE DAILY
     Route: 048
  10. NEXIUM [Concomitant]
     Dosage: ONE 40 MG IN THE MORNING
     Route: 048
  11. PARACETAMOL [Concomitant]
     Dosage: TWO 665MG THREE TIMES DAILY
     Route: 048
  12. POLY-TEARS [Concomitant]
     Dosage: 0.3-0.1% APPLIED FOUR TIMES DAILY
     Route: 047
  13. SERETIDE MITE [Concomitant]
     Dosage: 250-25MCG ONE PUFF IN THE EVENING VIA VOLUMATIC SPACER FOLLOWED BY GARGLE
  14. VITAMIN D [Concomitant]
     Dosage: 50,000 IU, 50MG, ONE MONTHLY
     Route: 048

REACTIONS (7)
  - DIZZINESS [None]
  - FACE INJURY [None]
  - FALL [None]
  - HEPATIC ENZYME INCREASED [None]
  - HYPERSOMNIA [None]
  - LETHARGY [None]
  - RENAL IMPAIRMENT [None]
